FAERS Safety Report 21755795 (Version 1)
Quarter: 2022Q4

REPORT INFORMATION
  Report Type: Spontaneous
  Country: US (occurrence: US)
  Receive Date: 20221220
  Receipt Date: 20221220
  Transmission Date: 20230112
  Serious: No
  Sender: FDA-Public Use
  Company Number: US-BRISTOL-MYERS SQUIBB COMPANY-2022-155790

PATIENT
  Age: 49 Year
  Sex: Male

DRUGS (1)
  1. ZEPOSIA [Suspect]
     Active Substance: OZANIMOD HYDROCHLORIDE
     Indication: Colitis ulcerative
     Dosage: 0.23 MG BY MOUTH 1 TIME A DAY FOR 4 DAYS, THEN TAKE 0.46 MG 1 TIME A DAY FOR 3 DAYS, THEN TAKE 0.92M
     Route: 048
     Dates: start: 202211

REACTIONS (1)
  - Tremor [Unknown]
